FAERS Safety Report 24147376 (Version 1)
Quarter: 2024Q3

REPORT INFORMATION
  Report Type: Report from Study
  Country: US (occurrence: US)
  Receive Date: 20240729
  Receipt Date: 20240729
  Transmission Date: 20241016
  Serious: Yes (Hospitalization, Other)
  Sender: INCYTE
  Company Number: US-INCYTE CORPORATION-2024IN007794

PATIENT

DRUGS (1)
  1. JAKAFI [Suspect]
     Active Substance: RUXOLITINIB
     Indication: Chronic graft versus host disease
     Dosage: 10 MILLIGRAM, BID
     Route: 065

REACTIONS (6)
  - Liver disorder [Unknown]
  - Renal disorder [Unknown]
  - Graft versus host disease in lung [Unknown]
  - Sepsis [Unknown]
  - Urinary tract infection [Unknown]
  - Intra-abdominal fluid collection [Unknown]
